FAERS Safety Report 7461695-1 (Version None)
Quarter: 2011Q2

REPORT INFORMATION
  Report Type: 
  Country: None (occurrence: None)
  Receive Date: 20110506
  Receipt Date: 20110426
  Transmission Date: 20111010
  Serious: Yes (Hospitalization)
  Sender: FDA-Public Use
  Company Number: FR-BAYER-2011-034568

PATIENT
  Age: 79 Year
  Sex: Male
  Weight: 103 kg

DRUGS (10)
  1. SEROPLEX [Concomitant]
     Indication: DYSPHONIA
     Dosage: DAILY DOSE 10 MG
     Route: 048
     Dates: start: 20091101
  2. LOXEN [Concomitant]
     Indication: HYPERTENSION
     Dosage: DAILY DOSE 80 MG
     Route: 048
  3. NUCTALON [Concomitant]
     Indication: INSOMNIA
     Dosage: UNK UNK, PRN
     Route: 048
     Dates: start: 20100901
  4. SERC [Concomitant]
     Indication: VERTIGO
     Dosage: DAILY DOSE 81 MG
     Route: 048
  5. EUPRESSYL [Concomitant]
     Indication: HYPERTENSION
     Dosage: DAILY DOSE 60 MG
     Dates: start: 20080425, end: 20110419
  6. SMECTA [SMECTITE] [Concomitant]
     Indication: DIARRHOEA
     Dosage: UNK UNK, PRN
     Route: 048
     Dates: start: 20090101
  7. SORAFENIB (RAF KINASE INHIBITOR) [Suspect]
     Indication: RENAL CELL CARCINOMA
     Dosage: DAILY DOSE 400 MG
     Route: 048
     Dates: start: 20090123, end: 20110329
  8. HYPERIUM [Concomitant]
     Indication: HYPERTENSION
     Dosage: DAILY DOSE 1 MG
     Route: 048
     Dates: start: 20081101
  9. HYZAAR [Concomitant]
     Indication: HYPERTENSION
     Dosage: ONE CAPSULE
     Route: 048
     Dates: start: 20100401
  10. KESTIN [Concomitant]
     Indication: DYSPHONIA
     Dosage: DAILY DOSE 10 MG
     Route: 048
     Dates: start: 20091101

REACTIONS (1)
  - GENERALISED OEDEMA [None]
